FAERS Safety Report 23111389 (Version 1)
Quarter: 2023Q4

REPORT INFORMATION
  Report Type: Spontaneous
  Country: US (occurrence: None)
  Receive Date: 20231025
  Receipt Date: 20231025
  Transmission Date: 20240110
  Serious: Yes (Hospitalization)
  Sender: FDA-Public Use
  Company Number: None

PATIENT
  Sex: Female

DRUGS (1)
  1. LENALIDOMIDE [Suspect]
     Active Substance: LENALIDOMIDE
     Indication: Plasma cell myeloma
     Dosage: OTHER FREQUENCY : 14 DAYS ON THEN 7 ;?
     Route: 048

REACTIONS (10)
  - Peripheral swelling [None]
  - Hypoaesthesia [None]
  - Paraesthesia [None]
  - Gait disturbance [None]
  - Taste disorder [None]
  - Food craving [None]
  - Fall [None]
  - Dehydration [None]
  - Hypotension [None]
  - Therapy cessation [None]
